FAERS Safety Report 21710189 (Version 2)
Quarter: 2023Q1

REPORT INFORMATION
  Report Type: Report from Study
  Country: IT (occurrence: IT)
  Receive Date: 20221211
  Receipt Date: 20230206
  Transmission Date: 20230418
  Serious: Yes (Hospitalization)
  Sender: FDA-Public Use
  Company Number: IT-BEH-2022152985

PATIENT
  Age: 83 Year
  Sex: Male
  Weight: 80 kg

DRUGS (6)
  1. IDELVION [Suspect]
     Active Substance: COAGULATION FACTOR IX RECOMBINANT HUMAN
     Indication: Factor IX deficiency
     Dosage: 4000 INTERNATIONAL UNIT, QW
     Route: 042
  2. IDELVION [Suspect]
     Active Substance: COAGULATION FACTOR IX RECOMBINANT HUMAN
     Indication: Factor IX deficiency
     Dosage: 4000 INTERNATIONAL UNIT, QW
     Route: 042
  3. IDELVION [Suspect]
     Active Substance: COAGULATION FACTOR IX RECOMBINANT HUMAN
     Indication: Prophylaxis
     Dosage: UNK UNK, QW
     Route: 042
     Dates: start: 20221129
  4. IDELVION [Suspect]
     Active Substance: COAGULATION FACTOR IX RECOMBINANT HUMAN
     Indication: Prophylaxis
     Dosage: UNK UNK, QW
     Route: 042
     Dates: start: 20221129
  5. IDELVION [Suspect]
     Active Substance: COAGULATION FACTOR IX RECOMBINANT HUMAN
     Dosage: UNK
     Route: 065
     Dates: start: 202212
  6. IDELVION [Suspect]
     Active Substance: COAGULATION FACTOR IX RECOMBINANT HUMAN
     Dosage: UNK
     Route: 065
     Dates: start: 202212

REACTIONS (1)
  - Urinary tract infection [Recovered/Resolved]

NARRATIVE: CASE EVENT DATE: 20221203
